FAERS Safety Report 4698292-7 (Version None)
Quarter: 2005Q2

REPORT INFORMATION
  Report Type: 
  Country: None (occurrence: None)
  Receive Date: 20050621
  Receipt Date: 20050531
  Transmission Date: 20051028
  Serious: Yes (Other)
  Sender: FDA-Public Use
  Company Number: B0383680A

PATIENT
  Age: 15 Year
  Sex: Male

DRUGS (1)
  1. EPIVIR [Suspect]
     Indication: HEPATITIS B

REACTIONS (2)
  - DRUG INEFFECTIVE [None]
  - HEPATIC STEATOSIS [None]
